FAERS Safety Report 11154960 (Version 2)
Quarter: 2015Q2

REPORT INFORMATION
  Report Type: Spontaneous
  Country: FR (occurrence: None)
  Receive Date: 20150529
  Receipt Date: 20150617
  Transmission Date: 20150821
  Serious: Yes (Other)
  Sender: FDA-Public Use
  Company Number: FR2015GSK056018

PATIENT
  Age: 45 Year
  Sex: Male
  Weight: 105 kg

DRUGS (3)
  1. KIVEXA [Suspect]
     Active Substance: ABACAVIR SULFATE\LAMIVUDINE
     Indication: HIV INFECTION
     Route: 048
     Dates: start: 20141127
  2. ATRIPLA (EFAVIRENZ + EMTRICITABINE + TENOFOVIR DISOPROXIL FUMARATE) [Concomitant]
  3. TIVICAY [Suspect]
     Active Substance: DOLUTEGRAVIR SODIUM
     Indication: HIV INFECTION
     Route: 048
     Dates: start: 20141127, end: 20150317

REACTIONS (2)
  - Blood creatinine increased [None]
  - Renal failure [None]

NARRATIVE: CASE EVENT DATE: 2014
